FAERS Safety Report 10241416 (Version 1)
Quarter: 2014Q2

REPORT INFORMATION
  Report Type: Spontaneous
  Country: CH (occurrence: CH)
  Receive Date: 20140617
  Receipt Date: 20140617
  Transmission Date: 20141212
  Serious: Yes (Hospitalization)
  Sender: FDA-Public Use
  Company Number: CH-ROCHE-1417930

PATIENT
  Age: 55 Year
  Sex: Male

DRUGS (12)
  1. CELLCEPT [Suspect]
     Indication: RENAL TRANSPLANT
     Route: 048
     Dates: start: 201401, end: 201402
  2. VALCYTE [Interacting]
     Indication: RENAL TRANSPLANT
     Route: 048
     Dates: start: 201401
  3. AMPHO-MORONAL [Interacting]
     Indication: RENAL TRANSPLANT
     Route: 048
     Dates: start: 201401, end: 201402
  4. NOPIL [Interacting]
     Indication: RENAL TRANSPLANT
     Route: 048
     Dates: start: 201401, end: 201402
  5. NOPIL [Interacting]
     Route: 048
  6. PANTOZOL (SWITZERLAND) [Interacting]
     Indication: RENAL TRANSPLANT
     Route: 048
     Dates: start: 201401
  7. PROGRAF [Interacting]
     Indication: RENAL TRANSPLANT
     Route: 048
     Dates: start: 201401
  8. PREDNISONE [Concomitant]
     Route: 065
  9. TENORMIN [Concomitant]
     Route: 065
  10. CALCIMAGON-D3 [Concomitant]
     Route: 065
  11. SORTIS [Concomitant]
     Route: 065
  12. IMUREK [Concomitant]

REACTIONS (3)
  - Hyperkalaemia [Recovered/Resolved]
  - Diarrhoea [Recovered/Resolved]
  - Drug interaction [Unknown]
